FAERS Safety Report 7762987-9 (Version None)
Quarter: 2011Q3

REPORT INFORMATION
  Report Type: 
  Country: None (occurrence: None)
  Receive Date: 20110920
  Receipt Date: 20110914
  Transmission Date: 20111222
  Serious: Yes (Death, Life-Threatening, Hospitalization)
  Sender: FDA-Public Use
  Company Number: IL-CELGENEUS-082-C5013-10081222

PATIENT
  Sex: Male
  Weight: 73 kg

DRUGS (1)
  1. LENALIDOMIDE [Suspect]
     Indication: MANTLE CELL LYMPHOMA
     Dosage: 10 MILLIGRAM
     Route: 048
     Dates: start: 20100803, end: 20100815

REACTIONS (2)
  - SEPTIC SHOCK [None]
  - PSEUDOMONAL SEPSIS [None]
